FAERS Safety Report 14156733 (Version 4)
Quarter: 2018Q2

REPORT INFORMATION
  Report Type: Report from Study
  Country: CA (occurrence: CA)
  Receive Date: 20171103
  Receipt Date: 20180620
  Transmission Date: 20180711
  Serious: Yes (Other)
  Sender: FDA-Public Use
  Company Number: CA-AMGEN-CANSL2017162962

PATIENT
  Age: 81 Year
  Sex: Female

DRUGS (8)
  1. METFORMIN [Concomitant]
     Active Substance: METFORMIN HYDROCHLORIDE
     Dosage: UNK
  2. VITAMIN D3 [Concomitant]
     Active Substance: CHOLECALCIFEROL
     Dosage: UNK
  3. INSULIN [Concomitant]
     Active Substance: INSULIN NOS
     Dosage: UNK
  4. CALCIUM [Concomitant]
     Active Substance: CALCIUM
     Dosage: 1500 MG, UNK
  5. PROLIA [Suspect]
     Active Substance: DENOSUMAB
     Indication: PRODUCT USED FOR UNKNOWN INDICATION
     Dosage: UNK
     Route: 065
     Dates: start: 201504, end: 201706
  6. VITAMIN B [Concomitant]
     Active Substance: VITAMIN B
     Dosage: UNK
  7. VITAMIN E KOMPLEX [Concomitant]
     Dosage: UNK
  8. VICTOZA [Concomitant]
     Active Substance: LIRAGLUTIDE
     Dosage: UNK

REACTIONS (11)
  - Tooth loss [Not Recovered/Not Resolved]
  - Jaw disorder [Unknown]
  - Pruritus [Unknown]
  - Tooth abscess [Unknown]
  - Oral fungal infection [Unknown]
  - Mastication disorder [Not Recovered/Not Resolved]
  - Pain in jaw [Unknown]
  - Musculoskeletal disorder [Unknown]
  - Gingival disorder [Unknown]
  - Hip arthroplasty [Unknown]
  - Cystitis [Unknown]
